FAERS Safety Report 6808668-7 (Version None)
Quarter: 2010Q2

REPORT INFORMATION
  Report Type: 
  Country: None (occurrence: None)
  Receive Date: 20100629
  Receipt Date: 20090928
  Transmission Date: 20101027
  Serious: No
  Sender: FDA-Public Use
  Company Number: US-PFIZER INC-2009244546

PATIENT
  Age: 62 Year
  Sex: Female

DRUGS (1)
  1. NITROSTAT [Suspect]
     Indication: CHEST PAIN
     Dosage: 0.4 MG, AS NEEDED
     Route: 060

REACTIONS (1)
  - DRUG INEFFECTIVE [None]
